FAERS Safety Report 6244633-9 (Version None)
Quarter: 2009Q2

REPORT INFORMATION
  Report Type: 
  Country: None (occurrence: None)
  Receive Date: 20090625
  Receipt Date: 20090619
  Transmission Date: 20091009
  Serious: Yes (Other)
  Sender: FDA-Public Use
  Company Number: GB-PFIZER INC-2006154792

PATIENT
  Age: 45 Year

DRUGS (4)
  1. LIPITOR [Suspect]
     Indication: HYPERLIPIDAEMIA
     Dosage: 10 MG, 1X/DAY
     Route: 048
     Dates: start: 20021028, end: 20061006
  2. AMLODIPINE [Concomitant]
     Dosage: 5 MG, 1X/DAY
  3. CANDESARTAN [Concomitant]
     Dosage: 4 MG, 1X/DAY
  4. KETOCONAZOLE [Concomitant]
     Route: 061

REACTIONS (2)
  - BLOOD CREATINE PHOSPHOKINASE INCREASED [None]
  - MUSCULOSKELETAL DISORDER [None]
